FAERS Safety Report 15601263 (Version 5)
Quarter: 2019Q1

REPORT INFORMATION
  Report Type: Report from Study
  Country: PL (occurrence: PL)
  Receive Date: 20181109
  Receipt Date: 20190329
  Transmission Date: 20190417
  Serious: Yes (Hospitalization)
  Sender: FDA-Public Use
  Company Number: PL-ROCHE-2207829

PATIENT
  Age: 49 Year
  Sex: Female
  Weight: 65 kg

DRUGS (27)
  1. TEGRETOL [Concomitant]
     Active Substance: CARBAMAZEPINE
     Route: 048
     Dates: start: 20181029
  2. ZYRTEC [Concomitant]
     Active Substance: CETIRIZINE HYDROCHLORIDE
     Dosage: SUBSEQUENT DOSE (10 MG) ON:11/FEB/2019.
     Route: 048
     Dates: start: 20180817, end: 20180817
  3. PARACETAMOL [Concomitant]
     Active Substance: ACETAMINOPHEN
     Dosage: SUBSEQUENT DOSE (1000 MG) ON: 11/FEB/2019.
     Route: 048
     Dates: start: 20180817, end: 20180817
  4. OCRELIZUMAB. [Suspect]
     Active Substance: OCRELIZUMAB
     Indication: RELAPSING-REMITTING MULTIPLE SCLEROSIS
     Dosage: MOST RECENT DOSE (600 MG) OF OCRELIZUMAB PRIOR TO EVENT: 17/AUG/2018?TWO 300 MILLIGRAM (MG) INFUSION
     Route: 042
     Dates: start: 20170921
  5. METHYLPREDNISOLONE. [Suspect]
     Active Substance: METHYLPREDNISOLONE
     Indication: PREMEDICATION
     Dosage: 21/SEP/2018 START TIME: 12: 40, STOP TIME: 12: 55. SUBSEQUENT DOSES RECEIVED ON: 06/OCT/2017 (START
     Route: 042
     Dates: start: 20170921
  6. LOKREN [Concomitant]
     Active Substance: BETAXOLOL HYDROCHLORIDE
     Route: 048
     Dates: start: 20181029
  7. BACLOFEN. [Concomitant]
     Active Substance: BACLOFEN
     Route: 048
     Dates: start: 20181028
  8. PRESTARIUM [Concomitant]
     Active Substance: PERINDOPRIL
     Route: 048
     Dates: end: 20180413
  9. SIRDALUD [Concomitant]
     Active Substance: TIZANIDINE
     Route: 048
  10. TEGRETOL [Concomitant]
     Active Substance: CARBAMAZEPINE
     Route: 048
     Dates: start: 20180814, end: 20181028
  11. AMERTIL [Concomitant]
     Active Substance: CETIRIZINE HYDROCHLORIDE
     Indication: PREMEDICATION
     Route: 048
     Dates: start: 20170921, end: 20170921
  12. AMERTIL [Concomitant]
     Active Substance: CETIRIZINE HYDROCHLORIDE
     Route: 048
     Dates: start: 20171006, end: 20171006
  13. ZYRTEC [Concomitant]
     Active Substance: CETIRIZINE HYDROCHLORIDE
     Indication: PREMEDICATION
     Route: 048
     Dates: start: 20180227, end: 20180227
  14. TULIP (POLAND) [Concomitant]
     Route: 048
     Dates: start: 20170416
  15. CLEXANE [Concomitant]
     Active Substance: ENOXAPARIN SODIUM
     Route: 058
     Dates: start: 20181028, end: 20181106
  16. PRESTARIUM [Concomitant]
     Active Substance: PERINDOPRIL
     Route: 048
     Dates: start: 20180414
  17. TEGRETOL [Concomitant]
     Active Substance: CARBAMAZEPINE
     Route: 048
     Dates: start: 20180409, end: 20180422
  18. TEGRETOL [Concomitant]
     Active Substance: CARBAMAZEPINE
     Route: 048
     Dates: start: 20180423, end: 20180625
  19. DITROPAN [Concomitant]
     Active Substance: OXYBUTYNIN CHLORIDE
     Route: 048
     Dates: start: 20181028
  20. LACIDOFIL [Concomitant]
     Active Substance: LACTOBACILLUS ACIDOPHILUS\LACTOBACILLUS RHAMNOSUS
     Route: 048
     Dates: start: 20181107, end: 20181109
  21. PANZOL [Concomitant]
     Active Substance: PANTOPRAZOLE SODIUM
     Route: 048
     Dates: start: 20181029
  22. PARACETAMOL [Concomitant]
     Active Substance: ACETAMINOPHEN
     Indication: PREMEDICATION
     Route: 048
     Dates: start: 20180227, end: 20180227
  23. LACIDOFIL [Concomitant]
     Active Substance: LACTOBACILLUS ACIDOPHILUS\LACTOBACILLUS RHAMNOSUS
     Route: 048
     Dates: start: 20181028, end: 20181106
  24. FURAGINUM [Concomitant]
     Active Substance: FURAZIDINE
     Indication: PROPHYLAXIS
     Route: 048
     Dates: start: 20180409, end: 20181127
  25. LOKREN [Concomitant]
     Active Substance: BETAXOLOL HYDROCHLORIDE
     Route: 048
     Dates: end: 20181028
  26. SERTAGEN [Concomitant]
     Active Substance: SERTRALINE HYDROCHLORIDE
     Route: 048
  27. TEGRETOL [Concomitant]
     Active Substance: CARBAMAZEPINE
     Route: 048
     Dates: start: 20180626, end: 20180813

REACTIONS (2)
  - Urinary tract infection [Recovered/Resolved]
  - Urosepsis [Recovered/Resolved]

NARRATIVE: CASE EVENT DATE: 20181028
